FAERS Safety Report 5366374-2 (Version None)
Quarter: 2007Q2

REPORT INFORMATION
  Report Type: 
  Country: None (occurrence: None)
  Receive Date: 20070622
  Receipt Date: 20070530
  Transmission Date: 20071010
  Serious: Yes (Other)
  Sender: FDA-Public Use
  Company Number: JP-BAYER-200712997GDS

PATIENT
  Age: 57 Year
  Sex: Female

DRUGS (2)
  1. ASPIRIN [Suspect]
     Indication: THALAMIC INFARCTION
     Route: 065
  2. WARFARIN SODIUM [Suspect]
     Indication: PARADOXICAL EMBOLISM

REACTIONS (1)
  - THALAMUS HAEMORRHAGE [None]
